FAERS Safety Report 8162796-5 (Version None)
Quarter: 2012Q1

REPORT INFORMATION
  Report Type: 
  Country: None (occurrence: None)
  Receive Date: 20120224
  Receipt Date: 20120220
  Transmission Date: 20120608
  Serious: Yes (Hospitalization)
  Sender: FDA-Public Use
  Company Number: FR-PFIZER INC-2012040298

PATIENT
  Age: 79 Year
  Sex: Male

DRUGS (10)
  1. AMLODIPINE BESYLATE [Suspect]
     Dosage: 10 MG
     Route: 048
     Dates: start: 20111224, end: 20120104
  2. ARIXTRA [Concomitant]
     Dosage: UNK
     Dates: start: 20111223, end: 20120103
  3. CIPROFLOXACIN [Suspect]
     Indication: LUNG DISORDER
     Dosage: 500 MG
     Route: 048
     Dates: start: 20111226, end: 20120103
  4. ZOLPIDEM [Concomitant]
     Dosage: UNK
     Dates: end: 20111223
  5. MOTILIUM [Concomitant]
     Dosage: UNK
     Dates: start: 20111223
  6. PIPERACILLIN AND TAZOBACTAM [Suspect]
     Indication: LUNG DISORDER
     Dosage: 4G/500 MG
     Route: 042
     Dates: start: 20111226, end: 20120103
  7. CLOZAPINE [Concomitant]
     Dosage: UNK
     Dates: start: 20120102
  8. PAROXETINE HYDROCHLORIDE [Concomitant]
     Dosage: UNK
     Dates: end: 20111223
  9. CLONAZEPAM [Concomitant]
     Dosage: UNK
     Dates: end: 20111223
  10. PERMIXON [Concomitant]
     Dosage: UNK
     Dates: end: 20111223

REACTIONS (1)
  - RASH MACULO-PAPULAR [None]
